FAERS Safety Report 6760670-X (Version None)
Quarter: 2010Q2

REPORT INFORMATION
  Report Type: 
  Country: None (occurrence: None)
  Receive Date: 20100608
  Receipt Date: 20100603
  Transmission Date: 20101027
  Serious: Yes (Other)
  Sender: FDA-Public Use
  Company Number: IE-PFIZER INC-2010069659

PATIENT
  Age: 55 Year
  Sex: Male

DRUGS (4)
  1. VIAGRA [Suspect]
     Dosage: 50 MG, UNK
  2. IRBESARTAN [Concomitant]
     Dosage: 50 MG, UNK
  3. PRAVASTATIN [Concomitant]
  4. ZOPICLONE [Concomitant]
     Dosage: UNK

REACTIONS (1)
  - EYELID PTOSIS [None]
